FAERS Safety Report 20821052 (Version 1)
Quarter: 2022Q2

REPORT INFORMATION
  Report Type: Spontaneous
  Country: US (occurrence: US)
  Receive Date: 20220512
  Receipt Date: 20220512
  Transmission Date: 20220721
  Serious: Yes (Other)
  Sender: FDA-Public Use
  Company Number: US-TAKEDA-2022TUS029048

PATIENT
  Sex: Female
  Weight: 62 kg

DRUGS (1)
  1. TAKHZYRO [Suspect]
     Active Substance: LANADELUMAB-FLYO
     Indication: Hereditary angioedema
     Route: 065

REACTIONS (6)
  - Suicide attempt [Unknown]
  - Hereditary angioedema [Unknown]
  - Feeling abnormal [Unknown]
  - Influenza like illness [Unknown]
  - Illness [Recovered/Resolved]
  - Depression [Recovered/Resolved]
